FAERS Safety Report 6084286-6 (Version None)
Quarter: 2009Q1

REPORT INFORMATION
  Report Type: 
  Country: None (occurrence: None)
  Receive Date: 20090219
  Receipt Date: 20090106
  Transmission Date: 20090719
  Serious: Yes (Other)
  Sender: FDA-Public Use
  Company Number: US-PFIZER INC-2009151744

PATIENT
  Sex: Female
  Weight: 58.503 kg

DRUGS (3)
  1. CHANTIX [Suspect]
     Indication: SMOKING CESSATION THERAPY
     Dosage: 0.5 MG, 2X/DAY
     Dates: start: 20081229, end: 20090105
  2. XANAX [Concomitant]
     Dosage: UNK
  3. VICODIN [Concomitant]
     Dosage: UNK

REACTIONS (2)
  - DEPRESSION [None]
  - FEELINGS OF WORTHLESSNESS [None]
